FAERS Safety Report 7391832-9 (Version None)
Quarter: 2011Q2

REPORT INFORMATION
  Report Type: 
  Country: None (occurrence: None)
  Receive Date: 20110404
  Receipt Date: 20110321
  Transmission Date: 20111010
  Serious: Yes (Hospitalization)
  Sender: FDA-Public Use
  Company Number: IN-SANOFI-AVENTIS-2011SA017909

PATIENT
  Age: 38 Year
  Sex: Female

DRUGS (4)
  1. DOCETAXEL [Suspect]
     Indication: BREAST CANCER
     Dosage: CYCLE 1
     Route: 065
  2. FLUOROURACIL [Concomitant]
     Dosage: DRUG: 5% FLUOROURACIL, CYCLE 1
     Route: 065
  3. CYCLOPHOSPHAMIDE [Concomitant]
     Dosage: CYCLE 1
     Route: 065
  4. EPIRUBICIN [Concomitant]
     Dosage: CYCLE 1
     Route: 065

REACTIONS (13)
  - PERITONITIS [None]
  - URINE OUTPUT DECREASED [None]
  - BLOOD CREATININE INCREASED [None]
  - HEART RATE INCREASED [None]
  - RESPIRATORY RATE INCREASED [None]
  - LARGE INTESTINE PERFORATION [None]
  - DIARRHOEA [None]
  - SHOCK [None]
  - GASTROINTESTINAL NECROSIS [None]
  - ABDOMINAL PAIN [None]
  - SEPSIS [None]
  - HYPOTENSION [None]
  - COLITIS [None]
